FAERS Safety Report 12600313 (Version 1)
Quarter: 2016Q3

REPORT INFORMATION
  Report Type: Spontaneous
  Country: US (occurrence: US)
  Receive Date: 20160727
  Receipt Date: 20160727
  Transmission Date: 20161109
  Serious: Yes (Other)
  Sender: FDA-Public Use
  Company Number: PHHY2016US100119

PATIENT
  Age: 50 Year
  Sex: Male

DRUGS (3)
  1. STRIBILD [Interacting]
     Active Substance: COBICISTAT\ELVITEGRAVIR\EMTRICITABINE\TENOFOVIR DISOPROXIL FUMARATE
     Indication: HIV INFECTION
     Dosage: 1 DF, QD
     Route: 065
  2. PREDNISONE. [Concomitant]
     Active Substance: PREDNISONE
     Indication: HIV INFECTION
     Dosage: 5 MG, QD
     Route: 048
  3. TACROLIMUS. [Suspect]
     Active Substance: TACROLIMUS
     Indication: HIV INFECTION
     Dosage: 2 MG, Q12H
     Route: 048

REACTIONS (5)
  - Acute kidney injury [Not Recovered/Not Resolved]
  - Toxicity to various agents [Recovered/Resolved]
  - Hyperkalaemia [Not Recovered/Not Resolved]
  - Drug interaction [Unknown]
  - Drug level above therapeutic [Recovered/Resolved]
